FAERS Safety Report 5510426-0 (Version None)
Quarter: 2007Q4

REPORT INFORMATION
  Report Type: 
  Country: None (occurrence: None)
  Receive Date: 20071108
  Receipt Date: 20071027
  Transmission Date: 20080405
  Serious: Yes (Other)
  Sender: FDA-Public Use
  Company Number: JP-PFIZER INC-2007090703

PATIENT
  Age: 80 Year
  Sex: Male

DRUGS (2)
  1. ZOLOFT [Suspect]
     Indication: DEPRESSION
     Dosage: DAILY DOSE:50MG-TEXT:TDD:50 MG
     Route: 048
     Dates: start: 20070622, end: 20071017
  2. THEOPHYLLINE [Suspect]
     Indication: ASTHMA
     Dosage: DAILY DOSE:400MG-TEXT:TDD:400 MG
     Route: 048

REACTIONS (2)
  - HAEMATURIA [None]
  - HENOCH-SCHONLEIN PURPURA [None]
